FAERS Safety Report 18474432 (Version 2)
Quarter: 2021Q2

REPORT INFORMATION
  Report Type: Spontaneous
  Country: US (occurrence: US)
  Receive Date: 20201106
  Receipt Date: 20210622
  Transmission Date: 20210717
  Serious: Yes (Hospitalization, Other)
  Sender: FDA-Public Use
  Company Number: US-ASTRAZENECA-2020SF43876

PATIENT
  Age: 20744 Day
  Sex: Female
  Weight: 85.3 kg

DRUGS (50)
  1. NEXIUM [Suspect]
     Active Substance: ESOMEPRAZOLE MAGNESIUM
     Indication: ABDOMINAL DISCOMFORT
     Route: 048
     Dates: start: 2001, end: 2018
  2. DEXILANT [Suspect]
     Active Substance: DEXLANSOPRAZOLE
     Indication: ABDOMINAL DISCOMFORT
     Route: 065
     Dates: start: 2009, end: 2018
  3. PROTONIX [Suspect]
     Active Substance: PANTOPRAZOLE SODIUM
     Indication: ABDOMINAL DISCOMFORT
     Route: 065
     Dates: start: 2000, end: 2018
  4. CLOTRIMAZOLE. [Concomitant]
     Active Substance: CLOTRIMAZOLE
  5. INSULIN LISPRO [Concomitant]
     Active Substance: INSULIN LISPRO
  6. VENTOLIN [Concomitant]
     Active Substance: ALBUTEROL SULFATE
  7. NORCO [Concomitant]
     Active Substance: ACETAMINOPHEN\HYDROCODONE BITARTRATE
  8. DEPAKOTE [Concomitant]
     Active Substance: DIVALPROEX SODIUM
  9. CYMBALTA [Concomitant]
     Active Substance: DULOXETINE HYDROCHLORIDE
  10. MECLIZINE [Concomitant]
     Active Substance: MECLIZINE HYDROCHLORIDE
  11. JANUVIA [Concomitant]
     Active Substance: SITAGLIPTIN PHOSPHATE
  12. PROTONIX [Suspect]
     Active Substance: PANTOPRAZOLE SODIUM
     Indication: ABDOMINAL DISCOMFORT
     Dosage: GENERIC; EMPTY STOMACH
     Route: 065
     Dates: start: 20140325
  13. GABAPENTIN. [Concomitant]
     Active Substance: GABAPENTIN
  14. QUETIAPINE. [Concomitant]
     Active Substance: QUETIAPINE
  15. ALPRAZOLAM. [Concomitant]
     Active Substance: ALPRAZOLAM
  16. LOSARTAN. [Concomitant]
     Active Substance: LOSARTAN
  17. IOPAMIDOL [Concomitant]
     Active Substance: IOPAMIDOL
  18. GLIPIZIDE. [Concomitant]
     Active Substance: GLIPIZIDE
  19. NEXIUM [Suspect]
     Active Substance: ESOMEPRAZOLE MAGNESIUM
     Indication: ABDOMINAL DISCOMFORT
     Route: 048
     Dates: start: 2000, end: 2018
  20. PRILOSEC [Suspect]
     Active Substance: OMEPRAZOLE MAGNESIUM
     Indication: ABDOMINAL DISCOMFORT
     Dosage: GENERIC
     Route: 065
     Dates: start: 20180619
  21. PREVACID [Suspect]
     Active Substance: LANSOPRAZOLE
     Indication: ABDOMINAL DISCOMFORT
     Route: 065
     Dates: start: 1998, end: 2018
  22. ???BISACODYL [Concomitant]
  23. LOVENOX [Concomitant]
     Active Substance: ENOXAPARIN SODIUM
  24. HUMULIN NOS [Concomitant]
     Active Substance: INSULIN HUMAN
  25. MIDAZOLAM. [Concomitant]
     Active Substance: MIDAZOLAM
  26. ZOFRAN [Concomitant]
     Active Substance: ONDANSETRON HYDROCHLORIDE
  27. NYSTATIN. [Concomitant]
     Active Substance: NYSTATIN
  28. COLACE [Concomitant]
     Active Substance: DOCUSATE SODIUM
  29. METFORMIN [Concomitant]
     Active Substance: METFORMIN HYDROCHLORIDE
  30. PRILOSEC [Suspect]
     Active Substance: OMEPRAZOLE MAGNESIUM
     Indication: ABDOMINAL DISCOMFORT
     Route: 048
     Dates: start: 1998, end: 2018
  31. DULOXETINE. [Concomitant]
     Active Substance: DULOXETINE
  32. SPIRIVA [Concomitant]
     Active Substance: TIOTROPIUM BROMIDE MONOHYDRATE
  33. LABETALOL [Concomitant]
     Active Substance: LABETALOL\LABETALOL HYDROCHLORIDE
  34. BENAZEPRIL [Concomitant]
     Active Substance: BENAZEPRIL HYDROCHLORIDE
  35. PROAIR HFA [Concomitant]
     Active Substance: ALBUTEROL SULFATE
  36. OCTREOTIDE ACETATE. [Concomitant]
     Active Substance: OCTREOTIDE ACETATE
  37. ENOXAPARIN [Concomitant]
     Active Substance: ENOXAPARIN
  38. ALBUTEROL. [Concomitant]
     Active Substance: ALBUTEROL
  39. SENNA [Concomitant]
     Active Substance: SENNA LEAF\SENNOSIDES\SENNOSIDES A AND B
  40. LORAZEPAM. [Concomitant]
     Active Substance: LORAZEPAM
  41. REGLAN [Concomitant]
     Active Substance: METOCLOPRAMIDE HYDROCHLORIDE
  42. DEMEROL [Concomitant]
     Active Substance: MEPERIDINE HYDROCHLORIDE
  43. SIMVASTATIN. [Concomitant]
     Active Substance: SIMVASTATIN
  44. ZOLPIDEM [Concomitant]
     Active Substance: ZOLPIDEM TARTRATE
  45. MARCAINE [Concomitant]
     Active Substance: BUPIVACAINE HYDROCHLORIDE
  46. CARBAMAZEPINE. [Concomitant]
     Active Substance: CARBAMAZEPINE
  47. OCTREOTIDE. [Concomitant]
     Active Substance: OCTREOTIDE
  48. PROCHLORPERAZINE. [Concomitant]
     Active Substance: PROCHLORPERAZINE
  49. VALPROATE [Concomitant]
     Active Substance: VALPROIC ACID
  50. LAMOTRIGINE. [Concomitant]
     Active Substance: LAMOTRIGINE

REACTIONS (4)
  - Rebound acid hypersecretion [Unknown]
  - Gastric cancer stage IV [Not Recovered/Not Resolved]
  - Acute kidney injury [Unknown]
  - Renal failure [Unknown]

NARRATIVE: CASE EVENT DATE: 20140311
